FAERS Safety Report 12507617 (Version 1)
Quarter: 2016Q2

REPORT INFORMATION
  Report Type: Spontaneous
  Country: FR (occurrence: FR)
  Receive Date: 20160629
  Receipt Date: 20160629
  Transmission Date: 20160815
  Serious: Yes (Other)
  Sender: FDA-Public Use
  Company Number: PHHY2016FR087508

PATIENT
  Sex: Female

DRUGS (1)
  1. SANDOSTATINE LP [Suspect]
     Active Substance: OCTREOTIDE ACETATE
     Indication: NEUROENDOCRINE TUMOUR
     Dosage: 30 MG, ONCE A MONTH (ALL 28 DAYS)
     Route: 065

REACTIONS (1)
  - Embolia cutis medicamentosa [Unknown]
